FAERS Safety Report 6622249-X (Version None)
Quarter: 2010Q1

REPORT INFORMATION
  Report Type: 
  Country: None (occurrence: None)
  Receive Date: 20100304
  Receipt Date: 20100217
  Transmission Date: 20100710
  Serious: Yes (Death)
  Sender: FDA-Public Use
  Company Number: 008940

PATIENT
  Age: 21 Year
  Sex: Female

DRUGS (4)
  1. BUSULFEX [Suspect]
     Indication: BONE MARROW TRANSPLANT
     Dosage: 12.8 MG/KG, INTRAVENOUS
     Route: 042
  2. CYCLOPHOSPHAMIDE [Concomitant]
  3. TACROLIMUS HYDRATE [Concomitant]
  4. METHOTREXATE [Concomitant]

REACTIONS (14)
  - ABDOMINAL PAIN UPPER [None]
  - ASCITES [None]
  - DIARRHOEA [None]
  - ERYTHEMA [None]
  - GASTROINTESTINAL HAEMORRHAGE [None]
  - GRAFT VERSUS HOST DISEASE [None]
  - HEPATOMEGALY [None]
  - INFECTION [None]
  - JAUNDICE [None]
  - ORGAN FAILURE [None]
  - RASH [None]
  - SKIN EXFOLIATION [None]
  - THROMBOTIC MICROANGIOPATHY [None]
  - VENOOCCLUSIVE LIVER DISEASE [None]
